FAERS Safety Report 19882225 (Version 1)
Quarter: 2021Q3

REPORT INFORMATION
  Report Type: Spontaneous
  Country: US (occurrence: US)
  Receive Date: 20210925
  Receipt Date: 20210925
  Transmission Date: 20211014
  Serious: Yes (Other)
  Sender: FDA-Public Use
  Company Number: US-TEVA-2021-US-1958389

PATIENT
  Age: 57 Year
  Sex: Female
  Weight: 132 kg

DRUGS (3)
  1. MEPERIDINE HYDROCHLORIDE. [Suspect]
     Active Substance: MEPERIDINE HYDROCHLORIDE
     Route: 065
  2. TYLENOL [Concomitant]
     Active Substance: ACETAMINOPHEN
     Indication: PAIN
     Dosage: DOSE: 500 MG
     Route: 065
     Dates: start: 20140101
  3. IBUPROFEN. [Concomitant]
     Active Substance: IBUPROFEN
     Route: 065

REACTIONS (2)
  - Urticaria [Unknown]
  - Anaphylactic reaction [Unknown]
